FAERS Safety Report 7298735-9 (Version None)
Quarter: 2011Q1

REPORT INFORMATION
  Report Type: 
  Country: None (occurrence: None)
  Receive Date: 20110209
  Receipt Date: 20110124
  Transmission Date: 20110831
  Serious: Yes (Hospitalization)
  Sender: FDA-Public Use
  Company Number: 2011MA000616

PATIENT
  Age: 52 Year
  Sex: Male

DRUGS (7)
  1. METFORMIN HYDROCHLORIDE [Suspect]
     Indication: DIABETES MELLITUS
     Dosage: PO
     Route: 048
  2. ENALAPRIL MALEATE [Concomitant]
  3. GLYBURIDE [Concomitant]
  4. SIMVASTATIN [Concomitant]
  5. INSULIN [Concomitant]
  6. ASPIRIN PLUS C [Concomitant]
  7. METFORMIN [Concomitant]

REACTIONS (14)
  - ASTHENIA [None]
  - VOMITING [None]
  - BLOOD CREATININE INCREASED [None]
  - TACHYPNOEA [None]
  - HAEMODIALYSIS [None]
  - ANURIA [None]
  - DIARRHOEA [None]
  - BLOOD GLUCOSE INCREASED [None]
  - HAEMODYNAMIC INSTABILITY [None]
  - ATRIOVENTRICULAR BLOCK COMPLETE [None]
  - MALAISE [None]
  - NAUSEA [None]
  - BLOOD PRESSURE DECREASED [None]
  - RESPIRATORY FAILURE [None]
